FAERS Safety Report 23728386 (Version 2)
Quarter: 2024Q2

REPORT INFORMATION
  Report Type: Spontaneous
  Country: US (occurrence: US)
  Receive Date: 20240410
  Receipt Date: 20240417
  Transmission Date: 20240716
  Serious: No
  Sender: FDA-Public Use
  Company Number: US-SANDOZ-SDZ2024US038089

PATIENT
  Sex: Female

DRUGS (1)
  1. VIVELLE-DOT [Suspect]
     Active Substance: ESTRADIOL
     Indication: Menopause
     Dosage: UNK
     Route: 065
     Dates: start: 202403

REACTIONS (4)
  - Breast tenderness [Unknown]
  - Personality disorder [Unknown]
  - Rash [Unknown]
  - Drug ineffective [Unknown]
